FAERS Safety Report 6520275-2 (Version None)
Quarter: 2009Q4

REPORT INFORMATION
  Report Type: 
  Country: None (occurrence: None)
  Receive Date: 20091229
  Receipt Date: 20091218
  Transmission Date: 20100525
  Serious: Yes (Hospitalization)
  Sender: FDA-Public Use
  Company Number: PL-NOVOPROD-302296

PATIENT

DRUGS (5)
  1. INSULIN DETEMIR 2.4 MOL/L [Suspect]
     Indication: TYPE 2 DIABETES MELLITUS
     Dosage: 7 U, UNK
     Route: 058
     Dates: start: 20090910
  2. BIOSOTAL [Concomitant]
     Dosage: 120 MG, UNK
     Route: 048
     Dates: start: 20091006
  3. SINTROM [Concomitant]
     Dosage: 3 MG, UNK
     Route: 048
     Dates: start: 20091006
  4. LOSARTAN [Concomitant]
     Dosage: 50 MG, UNK
     Route: 048
     Dates: start: 20061016
  5. ELTROXIN [Concomitant]
     Dosage: 25 UG, UNK
     Route: 048
     Dates: start: 20090616

REACTIONS (1)
  - ATRIAL FIBRILLATION [None]
